FAERS Safety Report 20391243 (Version 1)
Quarter: 2022Q1

REPORT INFORMATION
  Report Type: Spontaneous
  Country: US (occurrence: None)
  Receive Date: 20220127
  Receipt Date: 20220127
  Transmission Date: 20220423
  Serious: Yes (Hospitalization)
  Sender: FDA-Public Use
  Company Number: None

PATIENT
  Age: 9 Year
  Sex: Male
  Weight: 34.5 kg

DRUGS (21)
  1. RYLAZE [Suspect]
     Active Substance: ASPARAGINASE ERWINIA CHRYSANTHEMI (RECOMBINANT)-RYWN
     Indication: Acute myeloid leukaemia
     Dosage: OTHER FREQUENCY : ON DAY 2 AND 9;?
     Route: 030
     Dates: start: 20220114, end: 20220114
  2. Acetaminophen oral suspension [Concomitant]
  3. CALCIUM CARBONATE ORAL SUSPENSION [Concomitant]
     Active Substance: CALCIUM CARBONATE
     Dates: start: 20210722
  4. Sertraline oral solution [Concomitant]
     Dates: start: 20210927
  5. Cyproheptadine oral syrup [Concomitant]
     Dates: start: 20210927
  6. Granisetron injection [Concomitant]
     Dates: start: 20220114
  7. Magnesium carbonate oral solution [Concomitant]
     Dates: start: 20210920
  8. NYSTATIN [Concomitant]
     Active Substance: NYSTATIN
     Dates: start: 20210929
  9. Cytarabine infusion [Concomitant]
     Dates: start: 20220113, end: 20220114
  10. Sodium chloride nasal spray [Concomitant]
  11. Sulfamethoxazole-trimethoprim oral suspension [Concomitant]
     Dates: start: 20210717
  12. Valacyclovir oral suspension [Concomitant]
     Dates: start: 20210916
  13. Dexamethasone ophthalmic solution [Concomitant]
     Dates: start: 20220112, end: 20220114
  14. DIPHENHYDRAMINE [Concomitant]
     Active Substance: DIPHENHYDRAMINE
     Dates: start: 20220114, end: 20220114
  15. Famotidine IVPB [Concomitant]
     Dates: start: 20220114, end: 20220114
  16. Acetaminophen injectable [Concomitant]
  17. Allopurinol oral suspension [Concomitant]
     Dates: start: 20220110, end: 20220114
  18. CEFEPIME [Concomitant]
     Active Substance: CEFEPIME HYDROCHLORIDE
     Dates: start: 20220114, end: 20220116
  19. ONDANSETRON [Concomitant]
     Active Substance: ONDANSETRON
     Dates: start: 20220110, end: 20220114
  20. Posaconazole oral suspension [Concomitant]
     Dates: start: 20210810, end: 20220121
  21. Sennosides oral syrup [Concomitant]
     Dates: start: 20220111, end: 20220122

REACTIONS (1)
  - Pancreatitis acute [None]

NARRATIVE: CASE EVENT DATE: 20220121
